FAERS Safety Report 25468518 (Version 1)
Quarter: 2025Q2

REPORT INFORMATION
  Report Type: Report from Study
  Country: US (occurrence: US)
  Receive Date: 20250623
  Receipt Date: 20250623
  Transmission Date: 20250716
  Serious: Yes (Hospitalization, Other)
  Sender: VERONA PHARMA
  Company Number: US-VERONA PHARMA-VER-006670

PATIENT
  Sex: Male

DRUGS (4)
  1. OHTUVAYRE [Suspect]
     Active Substance: ENSIFENTRINE
     Indication: Chronic obstructive pulmonary disease
     Dosage: 3 MILLIGRAM, BID
     Dates: start: 20250523, end: 20250607
  2. OHTUVAYRE [Suspect]
     Active Substance: ENSIFENTRINE
     Indication: Emphysema
  3. ATENOLOL [Concomitant]
     Active Substance: ATENOLOL
     Indication: Product used for unknown indication
  4. TRULICITY [Concomitant]
     Active Substance: DULAGLUTIDE
     Indication: Product used for unknown indication

REACTIONS (4)
  - Hallucination [Recovered/Resolved]
  - Amnesia [Recovered/Resolved]
  - Pneumonia [Unknown]
  - Asthenia [Unknown]
